FAERS Safety Report 10285091 (Version 2)
Quarter: 2014Q3

REPORT INFORMATION
  Report Type: Spontaneous
  Country: US (occurrence: US)
  Receive Date: 20140708
  Receipt Date: 20140829
  Transmission Date: 20150326
  Serious: Yes (Hospitalization, Other)
  Sender: FDA-Public Use
  Company Number: US-PFIZER INC-2014189782

PATIENT
  Age: 83 Year
  Sex: Female
  Weight: 58.96 kg

DRUGS (7)
  1. TOVIAZ [Suspect]
     Active Substance: FESOTERODINE FUMARATE
     Indication: HYPERTONIC BLADDER
     Dosage: 8 MG, DAILY
     Dates: start: 2013
  2. AMLODIPINE [Concomitant]
     Active Substance: AMLODIPINE BESYLATE
     Indication: HYPERTENSION
     Dosage: 10 MG, DAILY
  3. TOVIAZ [Suspect]
     Active Substance: FESOTERODINE FUMARATE
     Dosage: 12 MG, DAILY (4MG MORNING + 8MG NIGHT)
     Dates: start: 2013
  4. TOVIAZ [Suspect]
     Active Substance: FESOTERODINE FUMARATE
     Dosage: 4 MG, DAILY
     Dates: start: 2014
  5. LISINOPRIL. [Concomitant]
     Active Substance: LISINOPRIL
     Indication: HYPERTENSION
     Dosage: 20 MG, DAILY
  6. TOVIAZ [Suspect]
     Active Substance: FESOTERODINE FUMARATE
     Dosage: 8 MG, UNK
     Dates: start: 20140305
  7. TOVIAZ [Suspect]
     Active Substance: FESOTERODINE FUMARATE
     Dosage: 4 MG, UNK
     Dates: start: 20140416

REACTIONS (4)
  - Gastrointestinal obstruction [Unknown]
  - Constipation [Recovering/Resolving]
  - Urinary incontinence [Not Recovered/Not Resolved]
  - Dyschezia [Recovered/Resolved]

NARRATIVE: CASE EVENT DATE: 2013
